FAERS Safety Report 5305130-8 (Version None)
Quarter: 2007Q2

REPORT INFORMATION
  Report Type: 
  Country: None (occurrence: None)
  Receive Date: 20070417
  Receipt Date: 20070411
  Transmission Date: 20071010
  Serious: Yes (Hospitalization)
  Sender: FDA-Public Use
  Company Number: CIP07000692

PATIENT
  Age: 58 Year
  Sex: Male

DRUGS (1)
  1. ASACOL [Suspect]
     Indication: COLITIS ULCERATIVE
     Dosage: ORAL
     Route: 048
     Dates: start: 20070310, end: 20070301

REACTIONS (7)
  - COLITIS ULCERATIVE [None]
  - COLONIC OBSTRUCTION [None]
  - CONDITION AGGRAVATED [None]
  - FAECALOMA [None]
  - INCORRECT DOSE ADMINISTERED [None]
  - MUSCLE SPASMS [None]
  - PAIN [None]
